FAERS Safety Report 6583711-1 (Version None)
Quarter: 2010Q1

REPORT INFORMATION
  Report Type: 
  Country: None (occurrence: None)
  Receive Date: 20100213
  Receipt Date: 20100213
  Transmission Date: 20100710
  Serious: Yes (Death, Hospitalization)
  Sender: FDA-Public Use
  Company Number: None

PATIENT
  Age: 22 Year
  Sex: Male
  Weight: 52 kg

DRUGS (2)
  1. ISONIAZID [Suspect]
     Indication: TUBERCULOSIS
     Dosage: 300 MG DAILY ORAL 047
     Route: 048
  2. RIFAMPIN [Suspect]
     Indication: TUBERCULOSIS
     Dosage: 600 MG DAILY ORAL 047
     Route: 048

REACTIONS (6)
  - COAGULOPATHY [None]
  - COMA [None]
  - JAUNDICE [None]
  - MALAISE [None]
  - NAUSEA [None]
  - RASH [None]
